FAERS Safety Report 14162698 (Version 2)
Quarter: 2018Q2

REPORT INFORMATION
  Report Type: Spontaneous
  Country: US (occurrence: US)
  Receive Date: 20171106
  Receipt Date: 20180425
  Transmission Date: 20180711
  Serious: Yes (Death)
  Sender: FDA-Public Use
  Company Number: US-NEUROCRINE BIOSCIENCES INC.-2017NBI01341

PATIENT
  Age: 56 Year
  Sex: Female
  Weight: 69.92 kg

DRUGS (7)
  1. INGREZZA [Suspect]
     Active Substance: VALBENAZINE
     Indication: TARDIVE DYSKINESIA
     Route: 048
     Dates: start: 20170703, end: 20171020
  2. ATIVAN [Concomitant]
     Active Substance: LORAZEPAM
     Indication: INSOMNIA
     Dosage: AS NEEDED
     Route: 048
  3. SEROQUEL [Concomitant]
     Active Substance: QUETIAPINE FUMARATE
     Indication: BIPOLAR DISORDER
     Dosage: AT BED TIME
     Route: 048
  4. LITHIUM. [Concomitant]
     Active Substance: LITHIUM
     Route: 048
     Dates: start: 20170905
  5. NUVIGIL [Concomitant]
     Active Substance: ARMODAFINIL
     Indication: SOMNOLENCE
     Dosage: IN THE MORNING
     Route: 048
  6. LITHIUM. [Concomitant]
     Active Substance: LITHIUM
     Indication: BIPOLAR I DISORDER
     Dosage: 300 MG EVERY OTHER DAY (TUESDAY, THURSDAY, SATURDAY)
     Route: 048
  7. LITHIUM. [Concomitant]
     Active Substance: LITHIUM
     Dosage: 300 MG MORNING AND 600 MG AT NIGHT ALTERNATING DAYS (MONDAY, WEDNESDAY, FRIDAY, SUNDAY)
     Route: 048
     Dates: end: 2017

REACTIONS (3)
  - Somnolence [Unknown]
  - Completed suicide [Fatal]
  - Insomnia [Unknown]

NARRATIVE: CASE EVENT DATE: 20171020
